FAERS Safety Report 15891771 (Version 1)
Quarter: 2019Q1

REPORT INFORMATION
  Report Type: Spontaneous
  Country: FR (occurrence: FR)
  Receive Date: 20190130
  Receipt Date: 20190130
  Transmission Date: 20190417
  Serious: Yes (Hospitalization)
  Sender: FDA-Public Use
  Company Number: FR-PFIZER INC-2019034901

PATIENT
  Age: 36 Year
  Sex: Male
  Weight: 92 kg

DRUGS (1)
  1. CHAMPIX [Suspect]
     Active Substance: VARENICLINE TARTRATE
     Indication: TOBACCO USER
     Dosage: 2 DF, 1X/DAY
     Route: 048
     Dates: start: 20181115, end: 20181130

REACTIONS (2)
  - Hemiparesis [Recovered/Resolved]
  - Language disorder [Recovered/Resolved]

NARRATIVE: CASE EVENT DATE: 20181129
